FAERS Safety Report 8482031-8 (Version None)
Quarter: 2012Q3

REPORT INFORMATION
  Report Type: 
  Country: None (occurrence: None)
  Receive Date: 20120702
  Receipt Date: 20120627
  Transmission Date: 20120928
  Serious: Yes (Other)
  Sender: FDA-Public Use
  Company Number: PHHY2012BR040542

PATIENT
  Sex: Female
  Weight: 55 kg

DRUGS (3)
  1. MYFORTIC [Suspect]
     Indication: RENAL TRANSPLANT
     Dosage: 180 MG, BID
     Route: 048
     Dates: start: 20070711
  2. PROGRAF [Concomitant]
     Indication: RENAL TRANSPLANT
     Dosage: 6 MG, UNK
     Route: 048
     Dates: start: 20070711
  3. PREDNISONE [Concomitant]
     Indication: RENAL TRANSPLANT
     Dosage: 10 MG, UNK
     Route: 048
     Dates: start: 20070711

REACTIONS (1)
  - MEMORY IMPAIRMENT [None]
